FAERS Safety Report 13710891 (Version 1)
Quarter: 2017Q3

REPORT INFORMATION
  Report Type: Spontaneous
  Country: US (occurrence: US)
  Receive Date: 20170701
  Receipt Date: 20170701
  Transmission Date: 20171127
  Serious: Yes (Hospitalization)
  Sender: FDA-Public Use
  Company Number: None

PATIENT
  Age: 56 Year
  Sex: Female
  Weight: 102.7 kg

DRUGS (1)
  1. CISPLATIN. [Suspect]
     Active Substance: CISPLATIN
     Dates: end: 20170418

REACTIONS (13)
  - Abdominal infection [None]
  - Dehydration [None]
  - Ovarian abscess [None]
  - Urinary tract infection [None]
  - Hypotension [None]
  - Haemoglobin decreased [None]
  - Staphylococcal infection [None]
  - Diarrhoea [None]
  - Asthenia [None]
  - Uterine perforation [None]
  - Abdominal pain [None]
  - Abscess fungal [None]
  - Fatigue [None]

NARRATIVE: CASE EVENT DATE: 20170420
